FAERS Safety Report 8361310-9 (Version None)
Quarter: 2012Q2

REPORT INFORMATION
  Report Type: 
  Country: None (occurrence: None)
  Receive Date: 20120515
  Receipt Date: 20120509
  Transmission Date: 20120825
  Serious: Yes (Hospitalization)
  Sender: FDA-Public Use
  Company Number: FR-MERCK-1205FRA00030

PATIENT
  Age: 80 Year
  Sex: Male

DRUGS (4)
  1. PAROXETINE HYDROCHLORIDE [Concomitant]
     Route: 048
  2. COSOPT [Suspect]
     Route: 047
     Dates: start: 20120101, end: 20120223
  3. ALPRAZOLAM [Concomitant]
     Route: 048
  4. ASPIRIN LYSINE [Concomitant]
     Route: 048

REACTIONS (1)
  - ORTHOSTATIC HYPOTENSION [None]
